FAERS Safety Report 7558625-0 (Version None)
Quarter: 2011Q2

REPORT INFORMATION
  Report Type: 
  Country: None (occurrence: None)
  Receive Date: 20110621
  Receipt Date: 20101007
  Transmission Date: 20111010
  Serious: No
  Sender: FDA-Public Use
  Company Number: US-BIOGENIDEC-2010BI016921

PATIENT
  Sex: Male

DRUGS (1)
  1. TYSABRI [Suspect]
     Indication: MULTIPLE SCLEROSIS
     Route: 042
     Dates: start: 20100301

REACTIONS (8)
  - SINUSITIS [None]
  - DRUG INEFFECTIVE [None]
  - BALANCE DISORDER [None]
  - JOINT STIFFNESS [None]
  - ANXIETY [None]
  - HYPOAESTHESIA [None]
  - ARTHRALGIA [None]
  - VITAMIN B12 DECREASED [None]
